FAERS Safety Report 7590384-8 (Version None)
Quarter: 2011Q3

REPORT INFORMATION
  Report Type: 
  Country: None (occurrence: None)
  Receive Date: 20110705
  Receipt Date: 20110620
  Transmission Date: 20111222
  Serious: Yes (Hospitalization, Other)
  Sender: FDA-Public Use
  Company Number: JP-BAYER-200913004BYL

PATIENT
  Age: 72 Year
  Sex: Male
  Weight: 59.1 kg

DRUGS (21)
  1. NEXAVAR [Suspect]
     Dosage: 800 MG (DAILY DOSE), , ORAL
     Route: 048
     Dates: start: 20090804, end: 20090819
  2. NEXAVAR [Suspect]
     Dosage: 400 MG (DAILY DOSE), , ORAL
     Route: 048
     Dates: start: 20091109, end: 20100303
  3. LASIX [Concomitant]
     Dosage: SINCE BEFORE ADMINISTRATION
     Route: 048
     Dates: end: 20100302
  4. NAPROXEN [Concomitant]
     Dosage: 300 MG (DAILY DOSE), , ORAL
     Route: 048
     Dates: start: 20091111, end: 20091127
  5. SOLDACTONE [Concomitant]
     Dosage: 400 MG (DAILY DOSE), , INTRAVENOUS
     Route: 042
     Dates: start: 20100324
  6. NAPROXEN [Concomitant]
     Dosage: 200 MG (DAILY DOSE), , ORAL
     Route: 048
     Dates: start: 20090710, end: 20090901
  7. NAPROXEN [Concomitant]
     Dosage: 600 MG (DAILY DOSE), , ORAL
     Route: 048
     Dates: start: 20091128
  8. HOKUNALIN [Concomitant]
     Dosage: SINCE BEFORE ADMINISTRATION
     Route: 062
  9. BARACLUDE [Concomitant]
     Dosage: SINCE BEFORE ADMINISTRATION
     Route: 048
  10. FAMOTIDINE [Concomitant]
     Dosage: 40 MG (DAILY DOSE), , INTRAVENOUS
     Route: 042
     Dates: start: 20100324
  11. SOLDACTONE [Concomitant]
     Dosage: 200 MG (DAILY DOSE), , INTRAVENOUS
     Route: 042
     Dates: start: 20100303, end: 20100309
  12. LASIX [Concomitant]
     Dosage: 20 MG (DAILY DOSE), , INTRAVENOUS
     Route: 042
     Dates: start: 20100303, end: 20100309
  13. METHYCOBAL [Concomitant]
     Indication: PALMAR-PLANTAR ERYTHRODYSAESTHESIA SYNDROME
     Dosage: 1500 ?G (DAILY DOSE), , UNKNOWN
     Route: 065
     Dates: start: 20091104
  14. NEXAVAR [Suspect]
     Indication: HEPATIC NEOPLASM MALIGNANT
     Route: 048
     Dates: start: 20090702, end: 20090729
  15. SOLDACTONE [Concomitant]
     Dosage: 100 MG (DAILY DOSE), , INTRAVENOUS
     Route: 042
     Dates: start: 20100302, end: 20100302
  16. URSO 250 [Concomitant]
     Dosage: SINCE BEFORE ADMINISTRATION
     Route: 048
     Dates: end: 20090719
  17. GASMOTIN [Concomitant]
     Dosage: SINCE BEFORE ADMINISTRATION
     Route: 048
     Dates: end: 20100324
  18. LASIX [Concomitant]
     Dosage: 40 MG (DAILY DOSE), , ORAL
     Route: 048
     Dates: start: 20100310, end: 20100323
  19. URSO 250 [Concomitant]
     Dosage: 600 MG (DAILY DOSE), , ORAL
     Route: 048
     Dates: start: 20090720, end: 20100323
  20. LASIX [Concomitant]
     Dosage: 40 MG (DAILY DOSE), , INTRAVENOUS
     Route: 042
     Dates: start: 20100324
  21. RABEPRAZOLE SODIUM [Concomitant]
     Dosage: SINCE BEFORE ADMINISTRATION
     Route: 048
     Dates: end: 20100324

REACTIONS (6)
  - STOMATITIS [None]
  - PYREXIA [None]
  - CONJUNCTIVAL HAEMORRHAGE [None]
  - PERIORBITAL HAEMATOMA [None]
  - HEPATIC FUNCTION ABNORMAL [None]
  - PALMAR-PLANTAR ERYTHRODYSAESTHESIA SYNDROME [None]
